FAERS Safety Report 16872768 (Version 1)
Quarter: 2019Q4

REPORT INFORMATION
  Report Type: Spontaneous
  Country: GB (occurrence: GB)
  Receive Date: 20191001
  Receipt Date: 20191001
  Transmission Date: 20200122
  Serious: Yes (Life-Threatening, Hospitalization, Other)
  Sender: FDA-Public Use
  Company Number: GB-TEVA-2019-GB-1115170

PATIENT
  Age: 79 Year
  Sex: Female
  Weight: 83.8 kg

DRUGS (8)
  1. FELODIPINE. [Concomitant]
     Active Substance: FELODIPINE
  2. GLICLAZIDE [Concomitant]
     Active Substance: GLICLAZIDE
  3. PIOGLITAZONE. [Suspect]
     Active Substance: PIOGLITAZONE
     Indication: TYPE 2 DIABETES MELLITUS
     Dosage: 15 MG PER DAY
     Route: 048
     Dates: start: 20040603, end: 20190902
  4. EZETIMIBE. [Concomitant]
     Active Substance: EZETIMIBE
  5. RAMIPRIL. [Concomitant]
     Active Substance: RAMIPRIL
  6. METFORMIN [Concomitant]
     Active Substance: METFORMIN HYDROCHLORIDE
  7. QUININE SULFATE. [Concomitant]
     Active Substance: QUININE SULFATE
  8. NITROFURANTOIN. [Concomitant]
     Active Substance: NITROFURANTOIN

REACTIONS (1)
  - Bladder neoplasm [Not Recovered/Not Resolved]

NARRATIVE: CASE EVENT DATE: 20190820
